FAERS Safety Report 4304342-X (Version None)
Quarter: 2004Q1

REPORT INFORMATION
  Report Type: 
  Country: None (occurrence: None)
  Receive Date: 20040224
  Receipt Date: 20040209
  Transmission Date: 20041129
  Serious: Yes (Hospitalization, Other)
  Sender: FDA-Public Use
  Company Number: 186737

PATIENT
  Age: 56 Year
  Sex: Female
  Weight: 61.6892 kg

DRUGS (4)
  1. AVONEX [Suspect]
     Indication: MULTIPLE SCLEROSIS
     Dosage: 30 MCG QW IM
     Route: 030
     Dates: start: 20030401, end: 20031010
  2. CLOZAPINE [Concomitant]
  3. LEXAPRO [Concomitant]
  4. PROVIGIL [Concomitant]

REACTIONS (3)
  - BACK PAIN [None]
  - DEHYDRATION [None]
  - HEPATITIS VIRAL [None]
